FAERS Safety Report 8848619 (Version 1)
Quarter: 2012Q4

REPORT INFORMATION
  Report Type: Spontaneous
  Country: CN (occurrence: None)
  Receive Date: 20121015
  Receipt Date: 20121015
  Transmission Date: 20130627
  Serious: Yes (Other)
  Sender: FDA-Public Use
  Company Number: 2012000222

PATIENT
  Age: 49 Year
  Sex: Male
  Weight: 67 kg

DRUGS (1)
  1. ACEON [Suspect]
     Route: 048
     Dates: start: 20110630, end: 20110908

REACTIONS (4)
  - Blood pressure decreased [None]
  - Ecchymosis [None]
  - Nausea [None]
  - Dizziness [None]
